FAERS Safety Report 7709502-3 (Version None)
Quarter: 2011Q3

REPORT INFORMATION
  Report Type: 
  Country: None (occurrence: None)
  Receive Date: 20110825
  Receipt Date: 20110816
  Transmission Date: 20111222
  Serious: Yes (Other)
  Sender: FDA-Public Use
  Company Number: US-ABBOTT-11P-163-0846962-00

PATIENT
  Age: 43 Year
  Sex: Female
  Weight: 103.06 kg

DRUGS (5)
  1. LYRICA [Suspect]
     Indication: FIBROMYALGIA
     Dates: start: 20100101
  2. LYRICA [Suspect]
     Dates: start: 20100101
  3. PAXIL [Concomitant]
     Indication: DEPRESSION
  4. VICODIN [Suspect]
     Indication: PRODUCT USED FOR UNKNOWN INDICATION
  5. LYRICA [Suspect]

REACTIONS (8)
  - DYSPNOEA [None]
  - ABDOMINAL PAIN UPPER [None]
  - DYSPEPSIA [None]
  - MALAISE [None]
  - VISION BLURRED [None]
  - ABDOMINAL PAIN [None]
  - SWELLING [None]
  - CONFUSIONAL STATE [None]
